FAERS Safety Report 25063576 (Version 1)
Quarter: 2025Q1

REPORT INFORMATION
  Report Type: Spontaneous
  Country: CN (occurrence: CN)
  Receive Date: 20250311
  Receipt Date: 20250311
  Transmission Date: 20250408
  Serious: Yes (Hospitalization)
  Sender: PFIZER
  Company Number: CN-PFIZER INC-PV202500028284

PATIENT
  Age: 52 Year
  Sex: Male
  Weight: 81 kg

DRUGS (2)
  1. LORLATINIB [Suspect]
     Active Substance: LORLATINIB
     Indication: Neoplasm
     Dosage: 100 MG, 1X/DAY
     Route: 048
     Dates: start: 20241101, end: 20250222
  2. LORLATINIB [Suspect]
     Active Substance: LORLATINIB
     Indication: Lung cancer metastatic

REACTIONS (8)
  - Intestinal obstruction [Recovering/Resolving]
  - Cognitive disorder [Unknown]
  - Abdominal pain [Unknown]
  - Constipation [Unknown]
  - Blood glucose increased [Unknown]
  - Lipids increased [Unknown]
  - Proteinuria [Unknown]
  - Hypersensitivity [Recovering/Resolving]

NARRATIVE: CASE EVENT DATE: 20241201
